FAERS Safety Report 6705068-5 (Version None)
Quarter: 2010Q2

REPORT INFORMATION
  Report Type: 
  Country: None (occurrence: None)
  Receive Date: 20100430
  Receipt Date: 20100426
  Transmission Date: 20101027
  Serious: Yes (Hospitalization)
  Sender: FDA-Public Use
  Company Number: D0062349A

PATIENT
  Age: 69 Year
  Sex: Male
  Weight: 83.4 kg

DRUGS (25)
  1. ALKERAN [Suspect]
     Indication: MULTIPLE MYELOMA
     Dosage: 12.5MG PER DAY
     Route: 048
     Dates: start: 20080601, end: 20090101
  2. CELLCEPT [Suspect]
     Indication: IMMUNOSUPPRESSION
     Dosage: 500MG TWICE PER DAY
     Route: 048
     Dates: start: 19990101, end: 20090223
  3. SANDIMMUNE [Suspect]
     Indication: IMMUNOSUPPRESSION
     Dosage: 75MG TWICE PER DAY
     Route: 048
     Dates: start: 19990101
  4. DEXAMETHASONE [Suspect]
     Dosage: 40MG FOUR TIMES PER DAY
     Route: 048
     Dates: start: 20080601, end: 20090101
  5. AQUAPHOR [Concomitant]
     Indication: CARDIAC FAILURE
     Dosage: 20MG PER DAY
     Route: 048
     Dates: start: 20080701, end: 20090305
  6. ASPIRIN [Concomitant]
     Indication: CARDIOVASCULAR EVENT PROPHYLAXIS
     Dosage: 100MG PER DAY
     Route: 048
     Dates: start: 19990101
  7. SODIUM HYDROGEN CARBONATE [Concomitant]
     Route: 048
     Dates: start: 20000101
  8. CANDESARTAN CILEXETIL [Concomitant]
     Dosage: 8MG TWICE PER DAY
     Route: 048
     Dates: start: 20030101
  9. BONDRONAT [Concomitant]
     Indication: OSTEOPOROSIS
     Dosage: 6MG PER DAY
     Route: 042
     Dates: start: 20090211, end: 20090211
  10. CALCIMAGON [Concomitant]
     Indication: OSTEOPOROSIS
     Route: 048
     Dates: start: 19990101
  11. CYNT [Concomitant]
     Indication: HYPERTENSION
     Dosage: .4MG TWICE PER DAY
     Route: 048
     Dates: start: 20030101
  12. DELIX [Concomitant]
     Dosage: 5MG TWICE PER DAY
     Route: 048
     Dates: start: 19990101, end: 20090305
  13. EBRANTIL [Concomitant]
     Indication: HYPERTENSION
     Dosage: 90MG THREE TIMES PER DAY
     Route: 048
     Dates: start: 20030101
  14. FOLIC ACID [Concomitant]
     Dosage: 5MG TWICE PER DAY
     Route: 048
     Dates: start: 20090101
  15. GABAPENTIN [Concomitant]
     Indication: OSTEOPOROSIS PROPHYLAXIS
     Dosage: 100MG THREE TIMES PER DAY
     Route: 048
     Dates: start: 20080501, end: 20090218
  16. METOPROLOL SUCCINATE [Concomitant]
     Indication: HYPERTENSION
     Dosage: 47.5MG TWICE PER DAY
     Route: 048
     Dates: start: 20000101
  17. NEORECORMON [Concomitant]
     Route: 058
     Dates: start: 19990101
  18. NORVASC [Concomitant]
     Indication: HYPERTENSION
     Dosage: 5MG TWICE PER DAY
     Route: 048
     Dates: start: 20030101
  19. DIPYRONE TAB [Concomitant]
     Indication: PAIN
     Route: 048
     Dates: start: 20090101, end: 20090217
  20. PANTOZOL [Concomitant]
     Dosage: 40MG PER DAY
     Route: 048
     Dates: start: 19990101
  21. PRAVASTATIN SODIUM [Concomitant]
     Indication: PROPHYLAXIS
     Dosage: 40MG PER DAY
     Route: 048
     Dates: start: 20030101
  22. AMITRIPTYLINE HCL [Concomitant]
     Indication: OSTEOPOROSIS PROPHYLAXIS
     Dosage: 25MG PER DAY
     Route: 048
     Dates: start: 20080101, end: 20090218
  23. TAMSULOSIN HCL [Concomitant]
     Dosage: .4MG PER DAY
     Route: 048
     Dates: start: 20030101
  24. TORSEMIDE [Concomitant]
     Indication: HYPERTENSION
     Dosage: 20MG TWICE PER DAY
     Route: 048
     Dates: start: 20030101
  25. TRAMAL [Concomitant]
     Indication: OSTEOPOROSIS
     Dosage: 100MG TWICE PER DAY
     Route: 048
     Dates: start: 20081001, end: 20090305

REACTIONS (13)
  - DRUG INTERACTION [None]
  - FUNGAL INFECTION [None]
  - GENERAL PHYSICAL HEALTH DETERIORATION [None]
  - HAEMATOTOXICITY [None]
  - INFECTION SUSCEPTIBILITY INCREASED [None]
  - LEUKOPENIA [None]
  - MARASMUS [None]
  - PANCYTOPENIA [None]
  - PNEUMONIA [None]
  - PRURITUS [None]
  - PYREXIA [None]
  - RASH [None]
  - THROMBOCYTOPENIA [None]
